FAERS Safety Report 10775914 (Version 1)
Quarter: 2015Q1

REPORT INFORMATION
  Report Type: Spontaneous
  Country: US (occurrence: None)
  Receive Date: 20150205
  Receipt Date: 20150205
  Transmission Date: 20150721
  Serious: Yes (Other)
  Sender: FDA-Public Use
  Company Number: None

PATIENT

DRUGS (2)
  1. PRISMASATE [Suspect]
     Active Substance: CALCIUM CARBONATE\CHLORIDE ION\DEXTROSE\LACTIC ACID\MAGNESIUM CHLORIDE\POTASSIUM CHLORIDE\SODIUM BICARBONATE\SODIUM CHLORIDE
  2. CALCIUM CHLORIDE. [Suspect]
     Active Substance: CALCIUM CHLORIDE
     Dosage: DOSAGE FORM: INJECTABLE, ADM ROUTE: INJECTION, STRENGTH: 10%, TYPE: ABBOJECT UNIT OF USE, SIZE: 10 ML?

REACTIONS (4)
  - Product label confusion [None]
  - Incorrect dose administered [None]
  - Drug dispensing error [None]
  - Blood calcium increased [None]
